FAERS Safety Report 9197642 (Version 1)
Quarter: 2013Q1

REPORT INFORMATION
  Report Type: Spontaneous
  Country: US (occurrence: None)
  Receive Date: 20120709
  Receipt Date: 20120709
  Transmission Date: 20140127
  Serious: Yes (Other)
  Sender: FDA-Public Use
  Company Number: PHHY2011US48251

PATIENT
  Age: 75 Year
  Sex: Female

DRUGS (1)
  1. GLEEVEC (IMATINIB) [Suspect]
     Indication: CHRONIC MYELOID LEUKAEMIA
     Dosage: (EXCEPT SUNDAYS + WEDNESDAYS)
     Dates: start: 20101122

REACTIONS (10)
  - Weight decreased [None]
  - Incorrect storage of drug [None]
  - Anaemia [None]
  - Dysgeusia [None]
  - Malaise [None]
  - Headache [None]
  - Asthenia [None]
  - Nausea [None]
  - Diarrhoea [None]
  - Decreased appetite [None]
